FAERS Safety Report 21641588 (Version 1)
Quarter: 2022Q4

REPORT INFORMATION
  Report Type: Spontaneous
  Country: US (occurrence: US)
  Receive Date: 20221125
  Receipt Date: 20221125
  Transmission Date: 20230112
  Serious: No
  Sender: FDA-Public Use
  Company Number: US-JNJFOC-20221141708

PATIENT
  Age: 35 Year
  Sex: Female

DRUGS (1)
  1. SPRAVATO [Suspect]
     Active Substance: ESKETAMINE
     Indication: Product used for unknown indication
     Route: 045

REACTIONS (7)
  - Sinus pain [Unknown]
  - Dysphagia [Unknown]
  - Taste disorder [Unknown]
  - Gait disturbance [Unknown]
  - Dissociation [Unknown]
  - Headache [Unknown]
  - Feeling abnormal [Unknown]
